FAERS Safety Report 4907224-5 (Version None)
Quarter: 2006Q1

REPORT INFORMATION
  Report Type: 
  Country: None (occurrence: None)
  Receive Date: 20060207
  Receipt Date: 20060127
  Transmission Date: 20060701
  Serious: Yes (Hospitalization)
  Sender: FDA-Public Use
  Company Number: TPA2005A01673

PATIENT
  Age: 21 Year
  Sex: Female
  Weight: 58.9676 kg

DRUGS (7)
  1. ROZEREM [Suspect]
     Indication: INSOMNIA
     Dosage: 8 MG, PER ORAL
     Route: 048
     Dates: start: 20051024, end: 20051104
  2. ACETAMINOPHEN [Suspect]
  3. DIAZEAM (DIAZEPAM) [Concomitant]
  4. ALL OTHER  THERAPEUTIC PRODUCTS [Concomitant]
  5. LAMICTAL [Concomitant]
  6. RISPERDAL [Concomitant]
  7. LITHIUM(LITHIUM) (900 MILLIGRAM) [Suspect]
     Dosage: 900 MG, QHS, PER ORAL
     Route: 048
     Dates: start: 20030901, end: 20051101

REACTIONS (5)
  - HEPATITIS [None]
  - NAUSEA [None]
  - NEPHRITIS INTERSTITIAL [None]
  - RENAL FAILURE ACUTE [None]
  - VOMITING [None]
